FAERS Safety Report 9463139 (Version 2)
Quarter: 2013Q3

REPORT INFORMATION
  Report Type: Report from Study
  Country: US (occurrence: US)
  Receive Date: 20130817
  Receipt Date: 20130924
  Transmission Date: 20140515
  Serious: Yes (Other)
  Sender: FDA-Public Use
  Company Number: US-ROCHE-1262796

PATIENT
  Sex: Female

DRUGS (7)
  1. LUCENTIS [Suspect]
     Indication: RETINAL TELANGIECTASIA
     Route: 065
  2. AVASTIN [Suspect]
     Indication: RETINAL TELANGIECTASIA
     Route: 065
  3. AVASTIN [Suspect]
     Indication: OFF LABEL USE
  4. ESTRADIOL [Concomitant]
     Route: 048
  5. LOTREL [Concomitant]
     Dosage: 10-20 MG
     Route: 065
  6. WELLBUTRIN [Concomitant]
     Route: 065
  7. XALATAN [Concomitant]
     Dosage: 0.005% GTT 1 HS
     Route: 065

REACTIONS (3)
  - Blindness [Unknown]
  - Eye discharge [Unknown]
  - Retinal telangiectasia [Unknown]
